FAERS Safety Report 14065169 (Version 3)
Quarter: 2019Q2

REPORT INFORMATION
  Report Type: Spontaneous
  Country: US (occurrence: US)
  Receive Date: 20171009
  Receipt Date: 20190417
  Transmission Date: 20190711
  Serious: No
  Sender: FDA-Public Use
  Company Number: US-PFIZER INC-2017434410

PATIENT
  Age: 8 Year
  Sex: Male

DRUGS (2)
  1. GENOTROPIN MQ [Suspect]
     Active Substance: SOMATROPIN
     Dosage: UNK, DAILY
     Dates: start: 20120111
  2. GENOTROPIN MQ [Suspect]
     Active Substance: SOMATROPIN
     Indication: DWARFISM
     Dosage: 1 MG, DAILY
     Route: 058
     Dates: start: 2013

REACTIONS (1)
  - Decreased appetite [Unknown]
